FAERS Safety Report 4874066-9 (Version None)
Quarter: 2006Q1

REPORT INFORMATION
  Report Type: 
  Country: None (occurrence: None)
  Receive Date: 20060104
  Receipt Date: 20051221
  Transmission Date: 20060701
  Serious: Yes (Other)
  Sender: FDA-Public Use
  Company Number: 2005172558

PATIENT
  Sex: Female
  Weight: 49.8957 kg

DRUGS (8)
  1. LIPITOR [Suspect]
     Indication: BLOOD CHOLESTEROL INCREASED
     Dosage: DAILY
  2. ZITHROMAX [Suspect]
     Indication: ILL-DEFINED DISORDER
  3. CELEBREX [Suspect]
     Indication: FRACTURE
  4. CIPRO [Suspect]
     Indication: INFECTION
     Dates: start: 20050101, end: 20050101
  5. DIGOXIN [Concomitant]
  6. NAPROXEN [Concomitant]
  7. BACTRIM [Concomitant]
  8. FLEXERIL [Concomitant]

REACTIONS (13)
  - ANURIA [None]
  - BLOOD CHOLESTEROL INCREASED [None]
  - CARDIAC DISORDER [None]
  - CYSTITIS [None]
  - DRUG HYPERSENSITIVITY [None]
  - ELECTROCARDIOGRAM ABNORMAL [None]
  - HEART RATE INCREASED [None]
  - INFECTION [None]
  - INFREQUENT BOWEL MOVEMENTS [None]
  - PARAESTHESIA [None]
  - SINUS TACHYCARDIA [None]
  - TENDON DISORDER [None]
  - WAIST CIRCUMFERENCE INCREASED [None]
